FAERS Safety Report 4639948-1 (Version None)
Quarter: 2005Q2

REPORT INFORMATION
  Report Type: 
  Country: None (occurrence: None)
  Receive Date: 20050420
  Receipt Date: 20050408
  Transmission Date: 20051028
  Serious: Yes (Other)
  Sender: FDA-Public Use
  Company Number: DE-BRISTOL-MYERS SQUIBB COMPANY-12928685

PATIENT
  Sex: Female

DRUGS (4)
  1. KARVEA TABS [Suspect]
     Route: 048
  2. SIMVASTATIN [Suspect]
  3. HYDROCHLOROTHIAZIDE [Suspect]
     Dosage: TREATED OCCASIONALLY
  4. NOT REPORTED [Concomitant]

REACTIONS (2)
  - LEUKOPENIA [None]
  - THROMBOCYTOPENIA [None]
